FAERS Safety Report 5397658-X (Version None)
Quarter: 2007Q3

REPORT INFORMATION
  Report Type: 
  Country: None (occurrence: None)
  Receive Date: 20070723
  Receipt Date: 20070723
  Transmission Date: 20080115
  Serious: Yes (Life-Threatening, Hospitalization, Other)
  Sender: FDA-Public Use
  Company Number: None

PATIENT
  Sex: Male
  Weight: 95.2554 kg

DRUGS (1)
  1. LYRICA [Suspect]
     Indication: PAIN
     Dosage: 150 MG TID PO
     Route: 048
     Dates: start: 20070427, end: 20070621

REACTIONS (11)
  - ANAEMIA [None]
  - ANOXIC ENCEPHALOPATHY [None]
  - ASPIRATION [None]
  - CLOSTRIDIUM DIFFICILE COLITIS [None]
  - HEPATIC FAILURE [None]
  - HYPOKALAEMIA [None]
  - HYPOMAGNESAEMIA [None]
  - RENAL FAILURE ACUTE [None]
  - RESPIRATORY FAILURE [None]
  - RHABDOMYOLYSIS [None]
  - RIGHT VENTRICULAR FAILURE [None]
